FAERS Safety Report 9233756 (Version 2)
Quarter: 2013Q2

REPORT INFORMATION
  Report Type: Report from Study
  Country: US (occurrence: US)
  Receive Date: 20130416
  Receipt Date: 20130502
  Transmission Date: 20140414
  Serious: Yes (Hospitalization)
  Sender: FDA-Public Use
  Company Number: US-GENZYME-CAMP-1002851

PATIENT
  Age: 36 Year
  Sex: Female
  Weight: 61 kg

DRUGS (22)
  1. ALEMTUZUMAB [Suspect]
     Indication: MULTIPLE SCLEROSIS
     Dosage: 12 MG, QD
     Route: 042
     Dates: start: 20121210, end: 20121212
  2. ALEMTUZUMAB [Suspect]
     Dosage: 12 MG, QD
     Route: 042
     Dates: start: 20111205, end: 20111209
  3. REBIF [Concomitant]
     Indication: MULTIPLE SCLEROSIS
     Dosage: 44 MCG, 3X/W
     Route: 058
     Dates: start: 20090804, end: 20110820
  4. METHYLPREDNISOLONE [Concomitant]
     Indication: MULTIPLE SCLEROSIS
     Dosage: 1 G, QD
     Route: 042
     Dates: start: 20100428, end: 20100430
  5. METHYLPREDNISOLONE [Concomitant]
     Indication: MULTIPLE SCLEROSIS
     Dosage: 1 G, QD
     Route: 042
     Dates: start: 20110125, end: 20110127
  6. METHYLPREDNISOLONE [Concomitant]
     Indication: MULTIPLE SCLEROSIS
     Dosage: 1 G, QD
     Route: 042
     Dates: start: 20110412, end: 20110414
  7. METHYLPREDNISOLONE [Concomitant]
     Indication: MULTIPLE SCLEROSIS
     Dosage: 1 G, QD
     Route: 042
     Dates: start: 20110912, end: 20110914
  8. METHYLPREDNISOLONE [Concomitant]
     Indication: MULTIPLE SCLEROSIS
     Dosage: 1 G, QD
     Route: 042
     Dates: start: 20111205, end: 20111207
  9. METHYLPREDNISOLONE [Concomitant]
     Indication: MULTIPLE SCLEROSIS
     Dosage: 1 G, QD
     Route: 042
     Dates: start: 20121210, end: 20121212
  10. MINOCYCLINE [Concomitant]
     Indication: PRODUCT USED FOR UNKNOWN INDICATION
     Dosage: 100 MG, BID
     Route: 048
     Dates: start: 201202
  11. LANSOPRAZOLE [Concomitant]
     Indication: PRODUCT USED FOR UNKNOWN INDICATION
     Dosage: 15 MG, BID
     Route: 048
     Dates: start: 201202
  12. IBUPROFEN [Concomitant]
     Indication: PRODUCT USED FOR UNKNOWN INDICATION
     Dosage: 200 MG, PRN
     Route: 048
     Dates: start: 20120822
  13. ACETAMINOPHEN [Concomitant]
     Indication: PRODUCT USED FOR UNKNOWN INDICATION
     Dosage: 1000 MG, PRN
     Route: 048
     Dates: start: 20120822
  14. NORMAL SALINE [Concomitant]
     Indication: DIARRHOEA
     Dosage: 1 L, QD
     Route: 042
     Dates: start: 20130413, end: 20130413
  15. NORMAL SALINE [Concomitant]
     Indication: DEHYDRATION
  16. NORMAL SALINE [Concomitant]
     Indication: HYPOTENSION
     Dosage: 4 L GIVEN OVER 5 DAYS
     Route: 042
     Dates: start: 20130404, end: 20130408
  17. NORMAL SALINE [Concomitant]
     Indication: DEHYDRATION
  18. LEVOFLOXACIN [Concomitant]
     Indication: URINARY TRACT INFECTION
     Dosage: 1 DOSE, QD
     Route: 065
     Dates: start: 20130404, end: 20130404
  19. DIPHENOXYLATE W [Concomitant]
     Indication: DIARRHOEA
     Dosage: UNK UNK, UNK
     Route: 065
     Dates: start: 20130413, end: 20130413
  20. HEPARIN [Concomitant]
     Indication: THROMBOSIS PROPHYLAXIS
     Dosage: 5000 U, BID
     Route: 065
     Dates: start: 20130404, end: 20130408
  21. VALACICLOVIR [Concomitant]
     Indication: GENITAL HERPES
     Dosage: UNK UNK, UNK
     Route: 065
  22. PANTOPRAZOLE [Concomitant]
     Indication: GASTRITIS
     Dosage: 40 MG, QD
     Route: 042
     Dates: start: 20130404, end: 20130408

REACTIONS (1)
  - Gastroenteritis [Not Recovered/Not Resolved]
